FAERS Safety Report 19494482 (Version 1)
Quarter: 2021Q3

REPORT INFORMATION
  Report Type: Spontaneous
  Country: US (occurrence: US)
  Receive Date: 20210706
  Receipt Date: 20210706
  Transmission Date: 20211014
  Serious: No
  Sender: FDA-Public Use
  Company Number: US-AMGEN-USASP2021100613

PATIENT
  Age: 64 Year
  Sex: Female

DRUGS (10)
  1. VASOTEC [ENALAPRILAT] [Concomitant]
     Active Substance: ENALAPRILAT
  2. METFORMIN [Concomitant]
     Active Substance: METFORMIN HYDROCHLORIDE
  3. METOPROLOL. [Concomitant]
     Active Substance: METOPROLOL
  4. CARBAMAZEPIN [Concomitant]
     Active Substance: CARBAMAZEPINE
  5. SIMVASTATIN. [Concomitant]
     Active Substance: SIMVASTATIN
  6. MONTELUKAST [Concomitant]
     Active Substance: MONTELUKAST SODIUM
  7. ROSUVASTATIN. [Concomitant]
     Active Substance: ROSUVASTATIN
  8. ENALAPRIL [Concomitant]
     Active Substance: ENALAPRIL
  9. OTEZLA [Suspect]
     Active Substance: APREMILAST
     Indication: PSORIATIC ARTHROPATHY
     Dosage: 30 MILLIGRAM, BID
     Route: 048
     Dates: start: 20201111
  10. GABAPENTIN. [Concomitant]
     Active Substance: GABAPENTIN

REACTIONS (1)
  - Arthralgia [Not Recovered/Not Resolved]
